FAERS Safety Report 16109182 (Version 1)
Quarter: 2019Q1

REPORT INFORMATION
  Report Type: Spontaneous
  Country: US (occurrence: US)
  Receive Date: 20190323
  Receipt Date: 20190323
  Transmission Date: 20190418
  Serious: No
  Sender: FDA-Public Use
  Company Number: US-THERAPEUTICSMD-2019TMD00236

PATIENT
  Age: 65 Year
  Sex: Female
  Weight: 46.26 kg

DRUGS (2)
  1. IMVEXXY [Suspect]
     Active Substance: ESTRADIOL
     Indication: VULVOVAGINAL DRYNESS
     Dosage: 10 ?G, 2X/WEEK (ONE WHILE UP AND ABOUT, THREE JUST PRIOR TO BEDTIME)
     Route: 067
     Dates: start: 201902, end: 20190225
  2. BIOIDENTICAL HORMONES [Concomitant]

REACTIONS (3)
  - Vulvovaginal burning sensation [Not Recovered/Not Resolved]
  - Off label use [Recovered/Resolved]
  - Vulvovaginal discomfort [Not Recovered/Not Resolved]

NARRATIVE: CASE EVENT DATE: 201902
